FAERS Safety Report 10177254 (Version 1)
Quarter: 2014Q2

REPORT INFORMATION
  Report Type: Spontaneous
  Country: PT (occurrence: PT)
  Receive Date: 20140516
  Receipt Date: 20140516
  Transmission Date: 20141212
  Serious: Yes (Other)
  Sender: FDA-Public Use
  Company Number: PT-JNJFOC-20140507265

PATIENT
  Age: 52 Year
  Sex: Male

DRUGS (2)
  1. REMICADE [Suspect]
     Indication: ANKYLOSING SPONDYLITIS
     Route: 042
  2. ACEMETACIN [Concomitant]
     Indication: ANKYLOSING SPONDYLITIS
     Dosage: 210MG DAILY FOR 20 MONTHS
     Route: 065

REACTIONS (1)
  - Systemic lupus erythematosus [Recovered/Resolved]
